FAERS Safety Report 8908633 (Version 1)
Quarter: 2012Q4

REPORT INFORMATION
  Report Type: 
  Country: US (occurrence: US)
  Receive Date: 20121113
  Receipt Date: 20121113
  Transmission Date: 20130627
  Serious: No
  Sender: FDA-Public Use
  Company Number: US-AMGEN-USASP2012038773

PATIENT
  Age: 49 Year
  Sex: Female

DRUGS (3)
  1. ENBREL [Suspect]
     Indication: PSORIASIS
     Dosage: UNK
     Dates: start: 2006
  2. INSULIN [Concomitant]
     Dosage: UNK
  3. HUMIRA [Concomitant]
     Dosage: UNK

REACTIONS (7)
  - Stress [Not Recovered/Not Resolved]
  - Injection site infection [Recovered/Resolved]
  - Malaise [Recovered/Resolved]
  - Injection site bruising [Not Recovered/Not Resolved]
  - Bronchitis [Not Recovered/Not Resolved]
  - Psoriasis [Not Recovered/Not Resolved]
  - Injection site pain [Not Recovered/Not Resolved]
